FAERS Safety Report 24545001 (Version 1)
Quarter: 2024Q4

REPORT INFORMATION
  Report Type: Spontaneous
  Country: CN (occurrence: CN)
  Receive Date: 20241024
  Receipt Date: 20241024
  Transmission Date: 20250114
  Serious: Yes (Life-Threatening)
  Sender: BAYER HEALTHCARE PHARMACEUTICALS INC.
  Company Number: CN-BAYER-2024A152128

PATIENT
  Age: 77 Year
  Sex: Female
  Weight: 50 kg

DRUGS (2)
  1. ULTRAVIST [Suspect]
     Active Substance: IOPROMIDE
     Indication: Angiocardiogram
     Dosage: 80 ML, ONCE
     Route: 042
     Dates: start: 20241021, end: 20241021
  2. ULTRAVIST [Suspect]
     Active Substance: IOPROMIDE
     Indication: Computerised tomogram abdomen

REACTIONS (3)
  - Hypotension [Recovering/Resolving]
  - Hyperhidrosis [Recovering/Resolving]
  - Abdominal tenderness [None]

NARRATIVE: CASE EVENT DATE: 20241021
